FAERS Safety Report 15964314 (Version 2)
Quarter: 2019Q1

REPORT INFORMATION
  Report Type: Spontaneous
  Country: PL (occurrence: PL)
  Receive Date: 20190215
  Receipt Date: 20190313
  Transmission Date: 20190417
  Serious: Yes (Hospitalization, Other)
  Sender: FDA-Public Use
  Company Number: PL-AUROBINDO-AUR-APL-2019-007764

PATIENT

DRUGS (9)
  1. TRAMADOL. [Interacting]
     Active Substance: TRAMADOL
     Indication: BACK PAIN
  2. CIPROFLOXACIN. [Interacting]
     Active Substance: CIPROFLOXACIN
     Indication: URINARY TRACT INFECTION
     Dosage: 1500 MILLIGRAM, ONCE A DAY, 1500 MG, QD
     Route: 065
  3. GINKGO BILOBA [Suspect]
     Active Substance: GINKGO
     Indication: PRODUCT USED FOR UNKNOWN INDICATION
     Dosage: UNK
     Route: 065
  4. ZOLPIDEM [Concomitant]
     Active Substance: ZOLPIDEM\ZOLPIDEM TARTRATE
     Indication: MAJOR DEPRESSION
     Dosage: 10 MG, QD (EACH EVENING)
     Route: 065
  5. KETOPROFEN. [Concomitant]
     Active Substance: KETOPROFEN
     Indication: BACK PAIN
     Dosage: 150 MILLIGRAM, ONCE A DAY, 50 MG, TID
     Route: 048
  6. TRAMADOL. [Suspect]
     Active Substance: TRAMADOL
     Indication: MYALGIA
     Dosage: UNK
     Route: 065
  7. DULOXETINE HYDROCHLORIDE. [Interacting]
     Active Substance: DULOXETINE HYDROCHLORIDE
     Indication: MAJOR DEPRESSION
     Dosage: UNK
     Route: 065
  8. DULOXETINE HYDROCHLORIDE. [Interacting]
     Active Substance: DULOXETINE HYDROCHLORIDE
     Indication: DEPRESSION
  9. CIPROFLOXACIN. [Interacting]
     Active Substance: CIPROFLOXACIN
     Dosage: 1000 MILLIGRAM, ONCE A DAY,500 MG, BID
     Route: 065

REACTIONS (6)
  - Urinary tract infection [Unknown]
  - Gastrointestinal haemorrhage [Unknown]
  - Hyperhidrosis [Recovering/Resolving]
  - Leukocytosis [Unknown]
  - Myalgia [Recovered/Resolved]
  - Drug interaction [Recovering/Resolving]
